FAERS Safety Report 15009639 (Version 2)
Quarter: 2018Q4

REPORT INFORMATION
  Report Type: Spontaneous
  Country: PT (occurrence: PT)
  Receive Date: 20180614
  Receipt Date: 20181117
  Transmission Date: 20190204
  Serious: Yes (Hospitalization, Other)
  Sender: FDA-Public Use
  Company Number: PT-VIVIMED-2017SP015474

PATIENT
  Age: 68 Year
  Sex: Male

DRUGS (12)
  1. METFORMIN [Interacting]
     Active Substance: METFORMIN HYDROCHLORIDE
     Indication: PRODUCT USED FOR UNKNOWN INDICATION
     Dosage: 3000 MG/DAY
     Route: 065
  2. AMLODIPINE [Suspect]
     Active Substance: AMLODIPINE BESYLATE
     Indication: PRODUCT USED FOR UNKNOWN INDICATION
     Dosage: 5 MG/DAY
     Route: 065
  3. IBUPROFEN. [Interacting]
     Active Substance: IBUPROFEN
     Indication: PRODUCT USED FOR UNKNOWN INDICATION
     Dosage: 800 MG/DAY
     Route: 065
  4. DIAZEPAM. [Interacting]
     Active Substance: DIAZEPAM
     Indication: PRODUCT USED FOR UNKNOWN INDICATION
     Dosage: 5MG DAILY
     Route: 065
  5. ENALAPRIL/HYDROCHLOROTHIAZIDE [Interacting]
     Active Substance: ENALAPRIL MALEATE\HYDROCHLOROTHIAZIDE
     Indication: PRODUCT USED FOR UNKNOWN INDICATION
     Dosage: 20 MG ENALAPRIL+12.5 MG/DAY OF HYDROCHLOROTHIAZIDE
     Route: 065
  6. COLCHICINE. [Interacting]
     Active Substance: COLCHICINE
     Indication: GOUTY ARTHRITIS
     Dosage: 2 MG/DAY
     Route: 065
  7. GLICLAZIDE [Concomitant]
     Active Substance: GLICLAZIDE
     Indication: PRODUCT USED FOR UNKNOWN INDICATION
     Dosage: 30 MG, EVERY 12 HRS
     Route: 065
  8. ASPIRIN. [Concomitant]
     Active Substance: ASPIRIN
     Dosage: 150 MG/DAY
     Route: 065
  9. INDAPAMIDE. [Interacting]
     Active Substance: INDAPAMIDE
     Indication: PRODUCT USED FOR UNKNOWN INDICATION
     Dosage: 2.5 MG, UNKNOWN
     Route: 065
  10. CLONIXIN [Interacting]
     Active Substance: CLONIXIN
     Indication: GOUTY ARTHRITIS
     Dosage: 300 MG/DAY
     Route: 065
  11. ARTICHOKE                          /00561501/ [Interacting]
     Active Substance: HERBALS
     Indication: GOUT
     Dosage: 1.5 L DAILY
     Route: 042
  12. ASPIRIN. [Concomitant]
     Active Substance: ASPIRIN
     Indication: PRODUCT USED FOR UNKNOWN INDICATION
     Dosage: 100 MG, UNK
     Route: 065

REACTIONS (7)
  - Herbal interaction [Recovered/Resolved]
  - Hepatotoxicity [Recovered/Resolved]
  - Jaundice [Recovered/Resolved]
  - Blood alkaline phosphatase increased [Recovered/Resolved]
  - Drug interaction [Recovered/Resolved]
  - Pruritus [Recovered/Resolved]
  - Cholestasis [Recovered/Resolved]
